FAERS Safety Report 7220105-X (Version None)
Quarter: 2011Q1

REPORT INFORMATION
  Report Type: 
  Country: None (occurrence: None)
  Receive Date: 20110111
  Receipt Date: 20110111
  Transmission Date: 20110831
  Serious: Yes (Death)
  Sender: FDA-Public Use
  Company Number: B0692390A

PATIENT
  Sex: Male
  Weight: 100 kg

DRUGS (1)
  1. ZANAMIVIR [Suspect]
     Dosage: 600MG TWICE PER DAY
     Route: 042

REACTIONS (1)
  - H1N1 INFLUENZA [None]
